FAERS Safety Report 7307889-7 (Version None)
Quarter: 2011Q1

REPORT INFORMATION
  Report Type: 
  Country: None (occurrence: None)
  Receive Date: 20110223
  Receipt Date: 20110216
  Transmission Date: 20110831
  Serious: Yes (Other)
  Sender: FDA-Public Use
  Company Number: US-AMGEN-USASP2010005437

PATIENT
  Age: 37 Year
  Sex: Female
  Weight: 81 kg

DRUGS (1)
  1. ENBREL [Suspect]
     Indication: RHEUMATOID ARTHRITIS
     Dosage: 50 MG, QWK
     Route: 058
     Dates: start: 20100401, end: 20101031

REACTIONS (6)
  - DEPRESSION [None]
  - WEIGHT INCREASED [None]
  - FATIGUE [None]
  - IRRITABILITY [None]
  - STRESS [None]
  - ANXIETY [None]
